FAERS Safety Report 17119859 (Version 1)
Quarter: 2019Q4

REPORT INFORMATION
  Report Type: Other
  Country: CA (occurrence: CA)
  Receive Date: 20191206
  Receipt Date: 20191206
  Transmission Date: 20200122
  Serious: Yes (Other)
  Sender: FDA-Public Use
  Company Number: CA-EMCURE PHARMACEUTICALS LTD-2019-EPL-1131

PATIENT
  Age: 46 Year
  Sex: Female

DRUGS (10)
  1. REVATIO [Concomitant]
     Active Substance: SILDENAFIL CITRATE
  2. VITAMIN D                          /00107901/ [Concomitant]
     Active Substance: ERGOCALCIFEROL
  3. ASA [Concomitant]
     Active Substance: ASPIRIN
  4. PREDNISONE. [Concomitant]
     Active Substance: PREDNISONE
  5. ZOLEDRONIC ACID [Suspect]
     Active Substance: ZOLEDRONIC ACID
     Indication: OSTEOPOROSIS
     Dosage: 5 MILLIGRAM, ONCE DOSE IN 1 YEAR
     Route: 042
  6. FELODIPINE. [Concomitant]
     Active Substance: FELODIPINE
  7. METHOTREXATE. [Concomitant]
     Active Substance: METHOTREXATE
  8. ACYCLOVIR                          /00587301/ [Concomitant]
     Active Substance: ACYCLOVIR
  9. HYDROXYCHLOROQUINE [Concomitant]
     Active Substance: HYDROXYCHLOROQUINE
  10. FOLIC ACID. [Concomitant]
     Active Substance: FOLIC ACID

REACTIONS (9)
  - Gait disturbance [Unknown]
  - Fatigue [Unknown]
  - Chills [Unknown]
  - Systemic lupus erythematosus [Unknown]
  - Decreased appetite [Unknown]
  - Pyrexia [Unknown]
  - Concomitant disease aggravated [Unknown]
  - Arthralgia [Unknown]
  - Pain [Unknown]
